FAERS Safety Report 21581509 (Version 6)
Quarter: 2023Q2

REPORT INFORMATION
  Report Type: Report from Study
  Country: US (occurrence: US)
  Receive Date: 20221111
  Receipt Date: 20230406
  Transmission Date: 20230722
  Serious: Yes (Hospitalization, Other)
  Sender: FDA-Public Use
  Company Number: US-TAKEDA-2022TUS073875

PATIENT
  Sex: Female
  Weight: 80 kg

DRUGS (37)
  1. ICATIBANT [Suspect]
     Active Substance: ICATIBANT ACETATE
     Indication: Immune system disorder
     Dosage: 30 MILLIGRAM
     Route: 058
     Dates: start: 20221004
  2. ICATIBANT [Suspect]
     Active Substance: ICATIBANT ACETATE
     Indication: Immune system disorder
     Dosage: 30 MILLIGRAM
     Route: 058
     Dates: start: 20221004
  3. ICATIBANT [Suspect]
     Active Substance: ICATIBANT ACETATE
     Indication: Anaphylactic shock
     Dosage: 30 MILLIGRAM, Q2WEEKS
     Route: 058
     Dates: start: 20221004
  4. ICATIBANT [Suspect]
     Active Substance: ICATIBANT ACETATE
     Indication: Anaphylactic shock
     Dosage: 30 MILLIGRAM, Q2WEEKS
     Route: 058
     Dates: start: 20221004
  5. TAKHZYRO [Suspect]
     Active Substance: LANADELUMAB-FLYO
     Indication: Immune system disorder
     Dosage: 300 MILLIGRAM, Q2WEEKS
     Route: 058
     Dates: start: 20221105
  6. TAKHZYRO [Suspect]
     Active Substance: LANADELUMAB-FLYO
     Indication: Anaphylactic shock
     Dosage: 300 MILLIGRAM, 3/WEEK
     Route: 058
     Dates: start: 20221105
  7. HEPARIN [Concomitant]
     Active Substance: HEPARIN SODIUM
  8. SODIUM CHLORIDE [Concomitant]
     Active Substance: SODIUM CHLORIDE
  9. STERILE WATER [Concomitant]
     Active Substance: WATER
  10. EPINEPHRINE [Concomitant]
     Active Substance: EPINEPHRINE
  11. RUCONEST [Concomitant]
     Active Substance: HUMAN C1-ESTERASE INHIBITOR
  12. ACETAMINOPHEN [Concomitant]
     Active Substance: ACETAMINOPHEN
  13. NEXPLANON [Concomitant]
     Active Substance: ETONOGESTREL
  14. ALBUTEROL SULFATE [Concomitant]
     Active Substance: ALBUTEROL SULFATE
  15. LEVALBUTEROL [Concomitant]
     Active Substance: LEVALBUTEROL
  16. LAMICTAL [Concomitant]
     Active Substance: LAMOTRIGINE
  17. SYMBICORT [Concomitant]
     Active Substance: BUDESONIDE\FORMOTEROL FUMARATE DIHYDRATE
  18. NEXIUM [Concomitant]
     Active Substance: ESOMEPRAZOLE MAGNESIUM
  19. ATIVAN [Concomitant]
     Active Substance: LORAZEPAM
  20. TIZANIDINE HYDROCHLORIDE [Concomitant]
     Active Substance: TIZANIDINE HYDROCHLORIDE
  21. TRAMADOL HCL [Concomitant]
     Active Substance: TRAMADOL HYDROCHLORIDE
  22. PROZAC [Concomitant]
     Active Substance: FLUOXETINE HYDROCHLORIDE
  23. GABAPENTIN [Concomitant]
     Active Substance: GABAPENTIN
  24. HYDROXYZINE HYDROCHLORIDE [Concomitant]
     Active Substance: HYDROXYZINE HYDROCHLORIDE
  25. XOLAIR [Concomitant]
     Active Substance: OMALIZUMAB
  26. FEXOFENADINE HYDROCHLORIDE [Concomitant]
     Active Substance: FEXOFENADINE HYDROCHLORIDE
  27. MOTEGRITY [Concomitant]
     Active Substance: PRUCALOPRIDE SUCCINATE
  28. DOXEPIN HCL [Concomitant]
     Active Substance: DOXEPIN HYDROCHLORIDE
  29. NORLYDA [Concomitant]
     Active Substance: NORETHINDRONE
  30. FLUOXETINE HYDROCHLORIDE [Concomitant]
     Active Substance: FLUOXETINE HYDROCHLORIDE
  31. CLONIDINE HYDROCHLORIDE [Concomitant]
     Active Substance: CLONIDINE HYDROCHLORIDE
  32. FLUOXETINE [Concomitant]
     Active Substance: FLUOXETINE HYDROCHLORIDE
  33. TIZANIDINE [Concomitant]
     Active Substance: TIZANIDINE
  34. TRAMADOL [Concomitant]
     Active Substance: TRAMADOL
  35. HYDROXYZINE [Concomitant]
     Active Substance: HYDROXYZINE HYDROCHLORIDE
  36. FEXOFENADINE [Concomitant]
     Active Substance: FEXOFENADINE HYDROCHLORIDE
  37. DOXEPIN [Concomitant]
     Active Substance: DOXEPIN

REACTIONS (6)
  - Dyspnoea [Not Recovered/Not Resolved]
  - Hereditary angioedema [Not Recovered/Not Resolved]
  - Hypersensitivity [Unknown]
  - Device related infection [Unknown]
  - Respiratory disorder [Unknown]
  - Blister [Unknown]
